FAERS Safety Report 11915514 (Version 1)
Quarter: 2016Q1

REPORT INFORMATION
  Report Type: Spontaneous
  Country: US (occurrence: None)
  Receive Date: 20160113
  Receipt Date: 20160113
  Transmission Date: 20160526
  Serious: Yes (Death)
  Sender: FDA-Public Use
  Company Number: None

PATIENT
  Age: 68 Year
  Sex: Male

DRUGS (1)
  1. KYPROLIS [Suspect]
     Active Substance: CARFILZOMIB
     Indication: PLASMA CELL MYELOMA
     Dosage: 15MG/M2 AS PRESCRIBED
     Route: 042

REACTIONS (4)
  - Dyspnoea [None]
  - Myocardial infarction [None]
  - Insomnia [None]
  - Cognitive disorder [None]

NARRATIVE: CASE EVENT DATE: 20160107
